FAERS Safety Report 18609545 (Version 1)
Quarter: 2020Q4

REPORT INFORMATION
  Report Type: Spontaneous
  Country: FR (occurrence: FR)
  Receive Date: 20201214
  Receipt Date: 20201214
  Transmission Date: 20210114
  Serious: Yes (Other)
  Sender: FDA-Public Use
  Company Number: FR-AUROBINDO-AUR-APL-2020-060276

PATIENT
  Age: 64 Year
  Sex: Male

DRUGS (3)
  1. IMIPENEM [Suspect]
     Active Substance: IMIPENEM
     Indication: INFECTION
     Dosage: UNK
     Route: 042
     Dates: end: 20200730
  2. LINEZOLID. [Suspect]
     Active Substance: LINEZOLID
     Indication: INFECTION
     Dosage: UNK
     Route: 042
     Dates: end: 20200730
  3. CEFTAZIDIME. [Suspect]
     Active Substance: CEFTAZIDIME
     Indication: INFECTION
     Dosage: UNK
     Route: 042
     Dates: end: 20200730

REACTIONS (2)
  - Eosinophilia [Recovering/Resolving]
  - Rash maculo-papular [Recovering/Resolving]

NARRATIVE: CASE EVENT DATE: 20200730
